FAERS Safety Report 14160653 (Version 1)
Quarter: 2017Q4

REPORT INFORMATION
  Report Type: Spontaneous
  Country: US (occurrence: US)
  Receive Date: 20171105
  Receipt Date: 20171105
  Transmission Date: 20180321
  Serious: No
  Sender: FDA-Public Use
  Company Number: US-SHIRE-US201722013

PATIENT
  Sex: Male

DRUGS (1)
  1. GATTEX [Suspect]
     Active Substance: TEDUGLUTIDE\WATER
     Indication: SHORT-BOWEL SYNDROME
     Dosage: ONE AND A HALF TO 2 WEEKS TOPS
     Route: 065

REACTIONS (3)
  - Flatulence [Unknown]
  - Joint swelling [Unknown]
  - Gastrointestinal stoma complication [Unknown]
